FAERS Safety Report 15457444 (Version 2)
Quarter: 2018Q4

REPORT INFORMATION
  Report Type: Other
  Country: CA (occurrence: CA)
  Receive Date: 20181002
  Receipt Date: 20181206
  Transmission Date: 20190204
  Serious: Yes (Life-Threatening)
  Sender: FDA-Public Use
  Company Number: CA-HLSUS-2018-CA-001422

PATIENT
  Age: 23 Year
  Sex: Male
  Weight: 63.5 kg

DRUGS (1)
  1. CLOZARIL [Suspect]
     Active Substance: CLOZAPINE
     Indication: SCHIZOPHRENIA
     Dosage: 400 MG
     Route: 048
     Dates: start: 20161103

REACTIONS (1)
  - Glioblastoma multiforme [None]

NARRATIVE: CASE EVENT DATE: 20180924
